FAERS Safety Report 10162276 (Version 1)
Quarter: 2014Q2

REPORT INFORMATION
  Report Type: Spontaneous
  Country: US (occurrence: US)
  Receive Date: 20140509
  Receipt Date: 20140509
  Transmission Date: 20141212
  Serious: Yes (Other)
  Sender: FDA-Public Use
  Company Number: US-BAYER-2014-066802

PATIENT
  Age: 18 Year
  Sex: Female

DRUGS (6)
  1. YAZ [Suspect]
     Dosage: UNK
     Dates: start: 200201, end: 201001
  2. YASMIN [Suspect]
     Dosage: UNK
     Dates: start: 200201, end: 201001
  3. OCELLA [Suspect]
     Dosage: UNK
     Dates: start: 200201, end: 201001
  4. BEYAZ [Suspect]
     Dosage: UNK
     Dates: start: 200201, end: 201001
  5. GIANVI [Suspect]
     Dosage: UNK
     Dates: start: 200201, end: 201001
  6. SAFYRAL [Suspect]
     Dosage: UNK
     Dates: start: 200201, end: 201001

REACTIONS (2)
  - Deep vein thrombosis [None]
  - Injury [None]
